FAERS Safety Report 24763190 (Version 1)
Quarter: 2024Q4

REPORT INFORMATION
  Report Type: Spontaneous
  Country: US (occurrence: US)
  Receive Date: 20241222
  Receipt Date: 20241222
  Transmission Date: 20250115
  Serious: No
  Sender: NOVARTIS
  Company Number: US-002147023-NVSC2024US242020

PATIENT

DRUGS (1)
  1. LEQVIO [Suspect]
     Active Substance: INCLISIRAN SODIUM
     Indication: Hyperlipidaemia
     Dosage: 284 MG, OTHER (1.5 ML) (INITIAL DOSE, ANOTHER AT 3 MONTHS, THEN ONCE EVERY 6 MONTHS)
     Route: 058

REACTIONS (1)
  - Wrong technique in device usage process [Unknown]
